FAERS Safety Report 8317566-1 (Version None)
Quarter: 2012Q2

REPORT INFORMATION
  Report Type: 
  Country: None (occurrence: None)
  Receive Date: 20120427
  Receipt Date: 20120419
  Transmission Date: 20120825
  Serious: Yes (Other)
  Sender: FDA-Public Use
  Company Number: US-UCBSA-020530

PATIENT
  Age: 70 Year
  Sex: Female
  Weight: 59.09 kg

DRUGS (9)
  1. PREDNISONE [Concomitant]
     Dates: start: 20100203, end: 20100424
  2. PREDNISONE [Concomitant]
     Dates: start: 20090825, end: 20090930
  3. PREDNISONE [Concomitant]
     Indication: CROHN'S DISEASE
     Dates: start: 20060301, end: 20070530
  4. CALCIUM 600 WITH VITAMIN D3 [Concomitant]
     Dates: start: 20100329
  5. PREDNISONE [Concomitant]
     Dates: start: 20090724, end: 20090823
  6. CIMZIA [Suspect]
     Indication: CROHN'S DISEASE
     Dates: start: 20100312, end: 20100409
  7. CIMZIA [Suspect]
     Dates: start: 20091231, end: 20100212
  8. PREDNISONE [Concomitant]
     Dates: start: 20091130, end: 20100110
  9. MULTI-VITAMIN [Concomitant]
     Dosage: 1 TABLET  DAILY
     Route: 048
     Dates: start: 20100329

REACTIONS (1)
  - BASAL CELL CARCINOMA [None]
